FAERS Safety Report 15407760 (Version 1)
Quarter: 2018Q3

REPORT INFORMATION
  Report Type: Report from Study
  Country: CA (occurrence: CA)
  Receive Date: 20180920
  Receipt Date: 20180920
  Transmission Date: 20181010
  Serious: Yes (Other)
  Sender: FDA-Public Use
  Company Number: CA-JNJFOC-20180914736

PATIENT
  Age: 55 Year
  Sex: Male
  Weight: 84 kg

DRUGS (1)
  1. SIMPONI [Suspect]
     Active Substance: GOLIMUMAB
     Indication: COLITIS ULCERATIVE
     Dosage: STRENGTH = 50 MG
     Route: 058
     Dates: start: 20150814

REACTIONS (3)
  - Haematochezia [Not Recovered/Not Resolved]
  - Product use issue [Unknown]
  - Off label use [Unknown]

NARRATIVE: CASE EVENT DATE: 20150814
